FAERS Safety Report 12324102 (Version 1)
Quarter: 2016Q2

REPORT INFORMATION
  Report Type: Spontaneous
  Country: US (occurrence: US)
  Receive Date: 20160502
  Receipt Date: 20160502
  Transmission Date: 20160815
  Serious: No
  Sender: FDA-Public Use
  Company Number: US-JUBILANT PHARMA LTD-2015US000067

PATIENT
  Age: 20 Year
  Sex: Female

DRUGS (1)
  1. DRAXIMAGE MDP-25 [Suspect]
     Active Substance: TECHNETIUM TC-99M MEDRONATE
     Indication: PRODUCT USED FOR UNKNOWN INDICATION
     Dosage: 20 MCI, SINGLE DOSE
     Route: 042
     Dates: start: 20150806, end: 20150806

REACTIONS (1)
  - Injection site joint pain [Unknown]

NARRATIVE: CASE EVENT DATE: 20150806
